FAERS Safety Report 8502464-0 (Version None)
Quarter: 2012Q3

REPORT INFORMATION
  Report Type: 
  Country: None (occurrence: None)
  Receive Date: 20120711
  Receipt Date: 20120703
  Transmission Date: 20120928
  Serious: Yes (Hospitalization)
  Sender: FDA-Public Use
  Company Number: IT-ASTELLAS-2012US005949

PATIENT
  Sex: Female

DRUGS (1)
  1. TARCEVA [Suspect]
     Indication: LUNG NEOPLASM
     Dosage: 100 MG, UID/QD
     Route: 048
     Dates: start: 20120101, end: 20120328

REACTIONS (2)
  - INCORRECT DOSE ADMINISTERED [None]
  - URTICARIA [None]
